FAERS Safety Report 8960165 (Version 1)
Quarter: 2012Q4

REPORT INFORMATION
  Report Type: 
  Country: FR (occurrence: FR)
  Receive Date: 20121212
  Receipt Date: 20121212
  Transmission Date: 20130627
  Serious: Yes (Hospitalization)
  Sender: FDA-Public Use
  Company Number: PHHY2012FR113104

PATIENT
  Age: 81 Year
  Sex: Male

DRUGS (12)
  1. LEPONEX [Suspect]
     Dosage: 25 mg, QD (morning : 0.5DF and evening : 2 DF)
     Route: 048
     Dates: start: 20110827, end: 20111103
  2. MODOPAR [Concomitant]
     Indication: PARKINSON^S DISEASE
     Dosage: 125 mg, QD
  3. STALEVO [Concomitant]
     Indication: PARKINSON^S DISEASE
     Dosage: 356.25 mg, QD in the morning
  4. STALEVO [Concomitant]
     Dosage: 325 mg, 6QD
  5. SPIRIVA [Concomitant]
     Indication: CHRONIC OBSTRUCTIVE PULMONARY DISEASE
  6. SYMBICORT [Concomitant]
     Indication: CHRONIC OBSTRUCTIVE PULMONARY DISEASE
  7. TAREG [Concomitant]
     Indication: HYPERTENSION
  8. PLAVIX [Concomitant]
     Indication: CORONARY ARTERY DISEASE
  9. DOMPERIDONE [Concomitant]
  10. ALPRAZOLAM [Concomitant]
  11. INEXIUM//ESOMEPRAZOLE SODIUM [Concomitant]
  12. XEROQUEL [Concomitant]
     Dosage: 0.5 DF, QD
     Dates: start: 20111110

REACTIONS (6)
  - General physical health deterioration [Unknown]
  - Agranulocytosis [Recovered/Resolved]
  - White blood cell count decreased [Recovered/Resolved]
  - Neutrophil count decreased [Recovered/Resolved]
  - White blood cell count increased [Unknown]
  - Neutrophil count increased [Unknown]
